FAERS Safety Report 5098559-7 (Version None)
Quarter: 2006Q3

REPORT INFORMATION
  Report Type: 
  Country: None (occurrence: None)
  Receive Date: 20060906
  Receipt Date: 20060228
  Transmission Date: 20061208
  Serious: No
  Sender: FDA-Public Use
  Company Number: US-GLAXOSMITHKLINE-A0595962A

PATIENT
  Sex: Female

DRUGS (6)
  1. REQUIP [Suspect]
     Indication: RESTLESS LEGS SYNDROME
     Route: 048
  2. GABITRIL [Concomitant]
  3. EVISTA [Concomitant]
  4. LOVASTATIN [Concomitant]
  5. DIOVAN [Concomitant]
  6. MOTRIN [Concomitant]

REACTIONS (7)
  - DISTURBANCE IN ATTENTION [None]
  - DIZZINESS [None]
  - DRUG EFFECT DECREASED [None]
  - DYSPNOEA [None]
  - PALPITATIONS [None]
  - RESTLESS LEGS SYNDROME [None]
  - SOMNOLENCE [None]
